FAERS Safety Report 14108232 (Version 3)
Quarter: 2018Q1

REPORT INFORMATION
  Report Type: Spontaneous
  Country: US (occurrence: US)
  Receive Date: 20171019
  Receipt Date: 20180122
  Transmission Date: 20180508
  Serious: Yes (Other)
  Sender: FDA-Public Use
  Company Number: US-ELI_LILLY_AND_COMPANY-US201710003455

PATIENT
  Age: 60 Year
  Sex: Female

DRUGS (1)
  1. FORTEO [Suspect]
     Active Substance: TERIPARATIDE
     Indication: PRODUCT USED FOR UNKNOWN INDICATION
     Dosage: UNK, UNKNOWN
     Route: 065
     Dates: start: 201707

REACTIONS (5)
  - Benign pancreatic neoplasm [Unknown]
  - Pancreatic carcinoma [Unknown]
  - Pancreatic calcification [Unknown]
  - Intraductal papillary-mucinous carcinoma of pancreas [Unknown]
  - Pancreatic enzymes increased [Unknown]
